FAERS Safety Report 5840026-4 (Version None)
Quarter: 2008Q3

REPORT INFORMATION
  Report Type: 
  Country: None (occurrence: None)
  Receive Date: 20080807
  Receipt Date: 20080807
  Transmission Date: 20090109
  Serious: Yes (Death, Life-Threatening, Hospitalization)
  Sender: FDA-Public Use
  Company Number: None

PATIENT
  Age: 70 Year
  Sex: Female

DRUGS (1)
  1. CELEBREX [Suspect]
     Indication: ARTHRITIS
     Dates: start: 20080501

REACTIONS (10)
  - BODY TEMPERATURE INCREASED [None]
  - CHOKING [None]
  - DYSGEUSIA [None]
  - FEELING ABNORMAL [None]
  - HYPOPHAGIA [None]
  - ILL-DEFINED DISORDER [None]
  - IMPAIRED DRIVING ABILITY [None]
  - MYODESOPSIA [None]
  - PLATELET COUNT DECREASED [None]
  - VISUAL IMPAIRMENT [None]
